FAERS Safety Report 21871205 (Version 4)
Quarter: 2024Q2

REPORT INFORMATION
  Report Type: Spontaneous
  Country: CA (occurrence: CA)
  Receive Date: 20230117
  Receipt Date: 20240410
  Transmission Date: 20240715
  Serious: Yes (Hospitalization)
  Sender: FDA-Public Use
  Company Number: CA-VIIV HEALTHCARE LIMITED-CA2023002554

PATIENT
  Age: 47 Year
  Sex: Male

DRUGS (4)
  1. RILPIVIRINE [Suspect]
     Active Substance: RILPIVIRINE
     Indication: HIV infection
     Dosage: 3 ML, Q2M
     Route: 030
     Dates: start: 20220825
  2. RILPIVIRINE [Suspect]
     Active Substance: RILPIVIRINE
     Dosage: UNK UNK, Q2M (600MG/ 3ML CABOTEGRAVIR AND 900MG/ 3ML RILPIVIRINE)
     Route: 030
  3. CABOTEGRAVIR [Suspect]
     Active Substance: CABOTEGRAVIR
     Indication: HIV infection
     Dosage: 3 ML, Q2M
     Route: 030
     Dates: start: 20220825
  4. CABOTEGRAVIR [Suspect]
     Active Substance: CABOTEGRAVIR
     Dosage: UNK UNK, Q2M (600MG/ 3ML CABOTEGRAVIR AND 900MG/ 3ML RILPIVIRINE)
     Route: 030

REACTIONS (2)
  - Psychotic disorder [Not Recovered/Not Resolved]
  - Inappropriate schedule of product administration [Unknown]
